FAERS Safety Report 7704145-X (Version None)
Quarter: 2011Q3

REPORT INFORMATION
  Report Type: 
  Country: None (occurrence: None)
  Receive Date: 20110818
  Receipt Date: 20110815
  Transmission Date: 20111222
  Serious: Yes (Hospitalization)
  Sender: FDA-Public Use
  Company Number: VISP-NO-1108S-0295

PATIENT
  Age: 63 Year
  Sex: Male

DRUGS (2)
  1. BETA-2 RECEPTOR BLOCKNG PHARMACON (PROPRANOLOL HYDROCHLORIDE) [Concomitant]
  2. VISIPAQUE [Suspect]
     Indication: CORONARY ARTERY DISEASE
     Dosage: 95 ML, SINGLE DOSE, INTRAVENOUS
     Route: 042
     Dates: start: 20110720, end: 20110720

REACTIONS (2)
  - HYPOTENSION [None]
  - UPPER GASTROINTESTINAL HAEMORRHAGE [None]
